FAERS Safety Report 5809341-4 (Version None)
Quarter: 2008Q3

REPORT INFORMATION
  Report Type: 
  Country: None (occurrence: None)
  Receive Date: 20080714
  Receipt Date: 20080702
  Transmission Date: 20090109
  Serious: Yes (Other)
  Sender: FDA-Public Use
  Company Number: PHBS2007JP17889

PATIENT
  Sex: Female

DRUGS (3)
  1. RITALIN [Suspect]
     Indication: DEPRESSED MOOD
     Dosage: 10 MG/DAY
     Route: 048
     Dates: start: 20070528, end: 20070602
  2. SERTRALINE HYDROCHLORIDE [Suspect]
     Indication: DEPRESSED MOOD
     Dosage: 100 MG/DAY
     Route: 048
     Dates: start: 20070514, end: 20070602
  3. SILECE [Concomitant]
     Indication: INSOMNIA
     Dosage: 4 MG/DAY
     Route: 048
     Dates: start: 20070201

REACTIONS (13)
  - ALANINE AMINOTRANSFERASE INCREASED [None]
  - BLOOD PRESSURE INCREASED [None]
  - BODY TEMPERATURE INCREASED [None]
  - EXTENSOR PLANTAR RESPONSE [None]
  - HYPERHIDROSIS [None]
  - HYPERREFLEXIA [None]
  - LIVER DISORDER [None]
  - MUSCLE RIGIDITY [None]
  - MYDRIASIS [None]
  - PUPILLARY REFLEX IMPAIRED [None]
  - SEROTONIN SYNDROME [None]
  - TACHYCARDIA [None]
  - TACHYPNOEA [None]
